FAERS Safety Report 5418979-8 (Version None)
Quarter: 2007Q3

REPORT INFORMATION
  Report Type: 
  Country: None (occurrence: None)
  Receive Date: 20070817
  Receipt Date: 20070806
  Transmission Date: 20080115
  Serious: Yes (Other)
  Sender: FDA-Public Use
  Company Number: US-PFIZER INC-2007066438

PATIENT
  Sex: Male
  Weight: 106.1 kg

DRUGS (19)
  1. NEURONTIN [Suspect]
  2. LYRICA [Suspect]
     Indication: DIABETIC NEUROPATHY
     Dates: start: 20070101, end: 20070101
  3. LOVASTATIN [Concomitant]
  4. DONEPEZIL HCL [Concomitant]
  5. CLARITIN [Concomitant]
  6. ASPIRIN [Concomitant]
  7. CALTRATE + D [Concomitant]
  8. SAW PALMETTO [Concomitant]
  9. VITAMIN E [Concomitant]
  10. VITAMIN D [Concomitant]
  11. KEPPRA [Concomitant]
  12. REQUIP [Concomitant]
  13. STALEVO 100 [Concomitant]
  14. ZELAPAR [Concomitant]
  15. METFORMIN HCL [Concomitant]
  16. CARBIDOPA AND LEVODOPA [Concomitant]
  17. FUROSEMIDE [Concomitant]
  18. TRAMADOL HCL [Concomitant]
  19. ASTELIN [Concomitant]

REACTIONS (4)
  - ABASIA [None]
  - BALANCE DISORDER [None]
  - DISORIENTATION [None]
  - MOBILITY DECREASED [None]
